FAERS Safety Report 23072196 (Version 1)
Quarter: 2023Q4

REPORT INFORMATION
  Report Type: Other
  Country: US (occurrence: US)
  Receive Date: 20231017
  Receipt Date: 20231017
  Transmission Date: 20240109
  Serious: Yes (Hospitalization)
  Sender: FDA-Public Use
  Company Number: US-INTERCEPT-PM2023001828

PATIENT
  Sex: Female
  Weight: 53.515 kg

DRUGS (37)
  1. OCALIVA [Suspect]
     Active Substance: OBETICHOLIC ACID
     Indication: Primary biliary cholangitis
     Dosage: 5 MILLIGRAM, QD
     Route: 048
     Dates: start: 20200808
  2. OCALIVA [Suspect]
     Active Substance: OBETICHOLIC ACID
     Indication: Product use in unapproved indication
     Dosage: 10 MILLIGRAM, QD
     Route: 048
     Dates: start: 202101
  3. OCALIVA [Suspect]
     Active Substance: OBETICHOLIC ACID
     Indication: Product use in unapproved indication
  4. OCALIVA [Suspect]
     Active Substance: OBETICHOLIC ACID
     Indication: Product use in unapproved indication
  5. OCALIVA [Suspect]
     Active Substance: OBETICHOLIC ACID
     Indication: Product use in unapproved indication
  6. URSODIOL [Concomitant]
     Active Substance: URSODIOL
  7. CEPHALEXIN [Concomitant]
     Active Substance: CEPHALEXIN
  8. ASCORBIC ACID\IRON [Concomitant]
     Active Substance: ASCORBIC ACID\IRON
  9. CYANOCOBALAMIN [Concomitant]
     Active Substance: CYANOCOBALAMIN
  10. MORPHINE SULFATE [Concomitant]
     Active Substance: MORPHINE SULFATE
  11. ALLEGRA ALLERGY [Concomitant]
     Active Substance: FEXOFENADINE HYDROCHLORIDE
  12. ZOFRAN [Concomitant]
     Active Substance: ONDANSETRON HYDROCHLORIDE
  13. PEPCID [Concomitant]
     Active Substance: FAMOTIDINE
  14. IPRATROPIUM BROMIDE [Concomitant]
     Active Substance: IPRATROPIUM BROMIDE\IPRATROPIUM BROMIDE ANHYDROUS
  15. DICLOFENAC SODIUM [Concomitant]
     Active Substance: DICLOFENAC\DICLOFENAC SODIUM
  16. MOMETASONE FUROATE [Concomitant]
     Active Substance: MOMETASONE FUROATE
  17. VITAMINS [Concomitant]
     Active Substance: VITAMINS
  18. XANAX [Concomitant]
     Active Substance: ALPRAZOLAM
  19. LAMICTAL [Concomitant]
     Active Substance: LAMOTRIGINE
  20. OMEPRAZOLE [Concomitant]
     Active Substance: OMEPRAZOLE
  21. SEROQUEL [Concomitant]
     Active Substance: QUETIAPINE FUMARATE
  22. LIPITOR [Concomitant]
     Active Substance: ATORVASTATIN CALCIUM
  23. VITAMIN B12 [Concomitant]
     Active Substance: CYANOCOBALAMIN
  24. TOPROL XL [Concomitant]
     Active Substance: METOPROLOL SUCCINATE
  25. ZOVIRAX [Concomitant]
     Active Substance: ACYCLOVIR
  26. VITAMIN D2 [Concomitant]
     Active Substance: ERGOCALCIFEROL
  27. ASPIRIN [Concomitant]
     Active Substance: ASPIRIN
  28. CYMBALTA [Concomitant]
     Active Substance: DULOXETINE HYDROCHLORIDE
  29. STOOL SOFTENER (DOCUSATE) [Concomitant]
     Active Substance: DOCUSATE
  30. PRILOSEC [Concomitant]
     Active Substance: OMEPRAZOLE MAGNESIUM
  31. BENTYL [Concomitant]
     Active Substance: DICYCLOMINE HYDROCHLORIDE
  32. PERCOCET [Concomitant]
     Active Substance: ACETAMINOPHEN\OXYCODONE HYDROCHLORIDE
  33. MYRBETRIQ [Concomitant]
     Active Substance: MIRABEGRON
  34. METHOCARBAMOL [Concomitant]
     Active Substance: METHOCARBAMOL
  35. POTASSIUM CHLORIDE [Concomitant]
     Active Substance: POTASSIUM CHLORIDE
  36. LASIX [Concomitant]
     Active Substance: FUROSEMIDE
  37. VENOFER [Concomitant]
     Active Substance: IRON SUCROSE

REACTIONS (1)
  - Hospitalisation [Unknown]
